FAERS Safety Report 5950832-3 (Version None)
Quarter: 2008Q4

REPORT INFORMATION
  Report Type: 
  Country: None (occurrence: None)
  Receive Date: 20081112
  Receipt Date: 20081106
  Transmission Date: 20090506
  Serious: Yes (Life-Threatening)
  Sender: FDA-Public Use
  Company Number: GB-ABBOTT-08P-167-0486253-00

PATIENT
  Sex: Male

DRUGS (1)
  1. REDUCTIL [Suspect]
     Indication: OBESITY
     Dates: start: 20060630, end: 20060728

REACTIONS (1)
  - SUICIDE ATTEMPT [None]
